FAERS Safety Report 12332808 (Version 1)
Quarter: 2016Q2

REPORT INFORMATION
  Report Type: Spontaneous
  Country: US (occurrence: US)
  Receive Date: 20160504
  Receipt Date: 20160504
  Transmission Date: 20160815
  Serious: No
  Sender: FDA-Public Use
  Company Number: US-ROCHE-1677852

PATIENT
  Sex: Male

DRUGS (1)
  1. ESBRIET [Suspect]
     Active Substance: PIRFENIDONE
     Indication: IDIOPATHIC PULMONARY FIBROSIS
     Route: 048
     Dates: start: 20151008

REACTIONS (9)
  - Decreased appetite [Unknown]
  - Dizziness [Unknown]
  - Malaise [Unknown]
  - Gastritis [Unknown]
  - Feeding disorder [Unknown]
  - Asthenia [Unknown]
  - Dyspepsia [Recovered/Resolved]
  - Abdominal distension [Unknown]
  - Nausea [Unknown]
